FAERS Safety Report 20823520 (Version 1)
Quarter: 2022Q2

REPORT INFORMATION
  Report Type: Spontaneous
  Country: US (occurrence: US)
  Receive Date: 20220513
  Receipt Date: 20220513
  Transmission Date: 20220721
  Serious: No
  Sender: FDA-Public Use
  Company Number: US-ELI_LILLY_AND_COMPANY-US202205002452

PATIENT
  Age: 100 Year
  Sex: Female

DRUGS (3)
  1. CYMBALTA [Suspect]
     Active Substance: DULOXETINE HYDROCHLORIDE
     Indication: Depression
     Dosage: 30 MG, UNKNOWN (ONLY TOOK 1 TABLET)
     Route: 048
     Dates: start: 20220423, end: 20220423
  2. SYNTHROID [Concomitant]
     Active Substance: LEVOTHYROXINE SODIUM
     Indication: Hypothyroidism
     Dosage: 50 UG, DAILY
  3. CALM TABS [Concomitant]
     Indication: Depression

REACTIONS (6)
  - Feeding disorder [Recovering/Resolving]
  - Mobility decreased [Unknown]
  - Mental impairment [Recovering/Resolving]
  - Nausea [Not Recovered/Not Resolved]
  - Feeling abnormal [Not Recovered/Not Resolved]
  - Decreased appetite [Recovering/Resolving]

NARRATIVE: CASE EVENT DATE: 20220423
